FAERS Safety Report 8514467-0 (Version None)
Quarter: 2012Q3

REPORT INFORMATION
  Report Type: 
  Country: None (occurrence: None)
  Receive Date: 20120717
  Receipt Date: 20120710
  Transmission Date: 20120928
  Serious: No
  Sender: FDA-Public Use
  Company Number: JP-PFIZER INC-2012145569

PATIENT
  Sex: Male

DRUGS (2)
  1. DIGOXIN [Concomitant]
     Dosage: UNK
     Route: 048
  2. ZITHROMAX [Suspect]
     Dosage: 500 MG, 1X/DAY
     Route: 048

REACTIONS (1)
  - DEHYDRATION [None]
